FAERS Safety Report 11829780 (Version 2)
Quarter: 2015Q4

REPORT INFORMATION
  Report Type: Spontaneous
  Country: US (occurrence: US)
  Receive Date: 20151212
  Receipt Date: 20151228
  Transmission Date: 20160305
  Serious: No
  Sender: FDA-Public Use
  Company Number: US-ASTRAZENECA-2015SF21173

PATIENT
  Age: 19261 Day
  Sex: Male
  Weight: 124.7 kg

DRUGS (2)
  1. BYETTA [Suspect]
     Active Substance: EXENATIDE
     Indication: TYPE 2 DIABETES MELLITUS
     Dosage: 250 MCG / 2.4 ML (5 MCG PEN), BID
     Route: 058
     Dates: start: 20151028, end: 20151119
  2. BYETTA [Suspect]
     Active Substance: EXENATIDE
     Indication: TYPE 2 DIABETES MELLITUS
     Dosage: 250 MCG/2.4 ML 10MCG PEN BID
     Route: 058
     Dates: start: 20151120

REACTIONS (5)
  - Bronchitis [Recovering/Resolving]
  - Underdose [Unknown]
  - Product quality issue [Unknown]
  - Blood glucose increased [Unknown]
  - Decreased appetite [Unknown]

NARRATIVE: CASE EVENT DATE: 20151126
